FAERS Safety Report 19084594 (Version 1)
Quarter: 2021Q2

REPORT INFORMATION
  Report Type: Spontaneous
  Country: US (occurrence: US)
  Receive Date: 20210401
  Receipt Date: 20210401
  Transmission Date: 20210717
  Serious: No
  Sender: FDA-Public Use
  Company Number: US-IBSA PHARMA-2018-IBS-00766

PATIENT
  Age: 56 Year

DRUGS (4)
  1. CELECOXIB. [Suspect]
     Active Substance: CELECOXIB
     Route: 048
  2. LISINOPRIL. [Suspect]
     Active Substance: LISINOPRIL
  3. ALENDRONATE [Suspect]
     Active Substance: ALENDRONATE SODIUM
  4. UNSPECIFIED DICLOFENAC EPOLAMINE [Suspect]
     Active Substance: DICLOFENAC EPOLAMINE

REACTIONS (1)
  - Drug hypersensitivity [Unknown]
